FAERS Safety Report 4632226-6 (Version None)
Quarter: 2005Q2

REPORT INFORMATION
  Report Type: 
  Country: None (occurrence: None)
  Receive Date: 20050411
  Receipt Date: 20040109
  Transmission Date: 20051028
  Serious: Yes (Hospitalization, Disabling)
  Sender: FDA-Public Use
  Company Number: US-ROCHE-355691

PATIENT
  Age: 17 Year
  Sex: Male
  Weight: 72.6 kg

DRUGS (2)
  1. ACCUTANE [Suspect]
     Indication: ACNE
     Route: 048
     Dates: start: 20001121, end: 20001228
  2. PROVENTIL [Concomitant]
     Indication: ASTHMA
     Route: 055

REACTIONS (19)
  - AGGRESSION [None]
  - AGITATION [None]
  - BIPOLAR I DISORDER [None]
  - BIPOLAR II DISORDER [None]
  - BLOOD BILIRUBIN INCREASED [None]
  - CHAPPED LIPS [None]
  - COLITIS [None]
  - COLITIS ULCERATIVE [None]
  - DEPRESSION [None]
  - DIZZINESS [None]
  - DRUG DEPENDENCE [None]
  - DRY MOUTH [None]
  - DRY SKIN [None]
  - LABORATORY TEST ABNORMAL [None]
  - LIBIDO DECREASED [None]
  - PARANOID PERSONALITY DISORDER [None]
  - PLATELET COUNT INCREASED [None]
  - RECTAL POLYP [None]
  - SELF-INJURIOUS IDEATION [None]
